FAERS Safety Report 4867641-9 (Version None)
Quarter: 2005Q4

REPORT INFORMATION
  Report Type: 
  Country: None (occurrence: None)
  Receive Date: 20051222
  Receipt Date: 20051207
  Transmission Date: 20060501
  Serious: Yes (Hospitalization, Other)
  Sender: FDA-Public Use
  Company Number: MC200501117

PATIENT
  Age: 51 Year
  Sex: Male
  Weight: 76.2 kg

DRUGS (1)
  1. ANGIOMAX [Suspect]
     Indication: CORONARY ANGIOPLASTY
     Dosage: 11.3 ML, BOLUS, IV BOLUS; SEE IMAGE
     Route: 040
     Dates: start: 20051206, end: 20051206

REACTIONS (4)
  - ARTERIAL THROMBOSIS [None]
  - ELECTROCARDIOGRAM ST SEGMENT ELEVATION [None]
  - PROCEDURAL COMPLICATION [None]
  - THROMBOSIS IN DEVICE [None]
